FAERS Safety Report 8937990 (Version 2)
Quarter: 2012Q4

REPORT INFORMATION
  Report Type: 
  Country: KR (occurrence: KR)
  Receive Date: 20121203
  Receipt Date: 20121220
  Transmission Date: 20130627
  Serious: Yes (Hospitalization, Other)
  Sender: FDA-Public Use
  Company Number: KR-ELI_LILLY_AND_COMPANY-KR201211007777

PATIENT
  Age: 62 Year
  Sex: Female

DRUGS (4)
  1. HUMALOG 25% LISPRO, 75% NPL [Suspect]
     Indication: TYPE 2 DIABETES MELLITUS
     Dosage: 14 u, each morning
     Dates: start: 20121011, end: 20121019
  2. HUMALOG 25% LISPRO, 75% NPL [Suspect]
     Dosage: 10 u, each evening
     Dates: start: 20121011, end: 20121019
  3. HUMALOG 25% LISPRO, 75% NPL [Suspect]
     Dosage: 18 u, each morning
  4. HUMALOG 25% LISPRO, 75% NPL [Suspect]
     Dosage: 16 u, each evening

REACTIONS (2)
  - Jaundice [Unknown]
  - Liver disorder [Unknown]
